FAERS Safety Report 19292637 (Version 1)
Quarter: 2021Q2

REPORT INFORMATION
  Report Type: Spontaneous
  Country: CN (occurrence: CN)
  Receive Date: 20210524
  Receipt Date: 20210524
  Transmission Date: 20210717
  Serious: Yes (Hospitalization, Other)
  Sender: FDA-Public Use
  Company Number: CN-JNJFOC-20210527458

PATIENT
  Age: 96 Year
  Sex: Male
  Weight: 50 kg

DRUGS (3)
  1. XARELTO [Suspect]
     Active Substance: RIVAROXABAN
     Indication: COAGULOPATHY
     Dosage: 10 MG, QD
     Route: 048
     Dates: end: 20210415
  2. XARELTO [Suspect]
     Active Substance: RIVAROXABAN
     Dosage: 10 MG, QD
     Route: 048
     Dates: start: 20210422
  3. XARELTO [Suspect]
     Active Substance: RIVAROXABAN
     Dosage: 15 MG, QD
     Route: 048
     Dates: start: 20210416, end: 20210421

REACTIONS (6)
  - Hepatic function abnormal [Recovering/Resolving]
  - Drug-induced liver injury [Recovering/Resolving]
  - Cardiac failure chronic [Unknown]
  - Prescribed underdose [Unknown]
  - Fibrin D dimer increased [Unknown]
  - Incorrect dose administered [Unknown]

NARRATIVE: CASE EVENT DATE: 2021
